FAERS Safety Report 4975693-0 (Version None)
Quarter: 2006Q2

REPORT INFORMATION
  Report Type: 
  Country: None (occurrence: None)
  Receive Date: 20060411
  Receipt Date: 20060405
  Transmission Date: 20061013
  Serious: Yes (Other)
  Sender: FDA-Public Use
  Company Number: 144827USA

PATIENT
  Age: 25 Year
  Sex: Male
  Weight: 56.6996 kg

DRUGS (1)
  1. COPAXONE [Suspect]
     Indication: MULTIPLE SCLEROSIS
     Dates: start: 19991015

REACTIONS (3)
  - INJECTION SITE HAEMATOMA [None]
  - INJECTION SITE NECROSIS [None]
  - SCAR [None]
